FAERS Safety Report 5205505-1 (Version None)
Quarter: 2006Q4

REPORT INFORMATION
  Report Type: 
  Country: None (occurrence: None)
  Receive Date: 20061027
  Receipt Date: 20060512
  Transmission Date: 20070319
  Serious: Yes (Other)
  Sender: FDA-Public Use
  Company Number: HQWYE358016MAY06

PATIENT
  Age: 69 Year
  Sex: Female
  Weight: 51.76 kg

DRUGS (5)
  1. PREMARIN [Suspect]
     Indication: OESTROGEN REPLACEMENT THERAPY
     Dosage: SEE IMAGE, ORAL
     Route: 048
     Dates: start: 19820101, end: 20040101
  2. PREMARIN [Suspect]
     Indication: OESTROGEN REPLACEMENT THERAPY
     Dosage: SEE IMAGE, ORAL
     Route: 048
     Dates: start: 20040101, end: 20050101
  3. PREMARIN [Suspect]
     Indication: OESTROGEN REPLACEMENT THERAPY
     Dosage: SEE IMAGE, ORAL
     Route: 048
     Dates: start: 20050101, end: 20060301
  4. PREMARIN [Suspect]
     Indication: OESTROGEN REPLACEMENT THERAPY
     Dosage: SEE IMAGE, ORAL
     Route: 048
     Dates: start: 20060301
  5. CALCIUM (CALCIUM) [Concomitant]

REACTIONS (2)
  - DRUG INEFFECTIVE [None]
  - FEELING ABNORMAL [None]
